FAERS Safety Report 24951350 (Version 1)
Quarter: 2025Q1

REPORT INFORMATION
  Report Type: Spontaneous
  Country: CA (occurrence: CA)
  Receive Date: 20250210
  Receipt Date: 20250210
  Transmission Date: 20250408
  Serious: Yes (Life-Threatening, Hospitalization, Other)
  Sender: ALCON
  Company Number: CA-ALCON LABORATORIES-ALC2021CA002749

PATIENT
  Age: 32 Year
  Sex: Female

DRUGS (6)
  1. ATROPINE SULFATE [Suspect]
     Active Substance: ATROPINE SULFATE
     Indication: Product used for unknown indication
     Route: 065
  2. BUPIVACAINE [Suspect]
     Active Substance: BUPIVACAINE
     Indication: Spinal anaesthesia
     Route: 065
  3. EPHEDRINE [Suspect]
     Active Substance: EPHEDRINE
     Indication: Spinal anaesthesia
     Route: 040
  4. FENTANYL [Suspect]
     Active Substance: FENTANYL
     Indication: Spinal anaesthesia
     Route: 065
  5. MORPHINE [Suspect]
     Active Substance: MORPHINE
     Indication: Spinal anaesthesia
     Route: 065
  6. PHENYLEPHRINE HYDROCHLORIDE [Suspect]
     Active Substance: PHENYLEPHRINE HYDROCHLORIDE
     Indication: Product used for unknown indication
     Route: 047

REACTIONS (9)
  - Anterior spinal artery syndrome [Not Recovered/Not Resolved]
  - Maternal exposure during pregnancy [Not Recovered/Not Resolved]
  - Neuralgia [Not Recovered/Not Resolved]
  - Paralysis [Not Recovered/Not Resolved]
  - Rhythm idioventricular [Not Recovered/Not Resolved]
  - Spinal cord injury [Not Recovered/Not Resolved]
  - Hypotension [Not Recovered/Not Resolved]
  - Urinary retention [Not Recovered/Not Resolved]
  - Bradycardia [Not Recovered/Not Resolved]
